APPROVED DRUG PRODUCT: ORETICYL 25
Active Ingredient: DESERPIDINE; HYDROCHLOROTHIAZIDE
Strength: 0.125MG;25MG
Dosage Form/Route: TABLET;ORAL
Application: N012148 | Product #001
Applicant: ABBVIE INC
Approved: Approved Prior to Jan 1, 1982 | RLD: No | RS: No | Type: DISCN